FAERS Safety Report 5574268-2 (Version None)
Quarter: 2007Q4

REPORT INFORMATION
  Report Type: 
  Country: None (occurrence: None)
  Receive Date: 20071221
  Receipt Date: 20071221
  Transmission Date: 20080405
  Serious: Yes (Other)
  Sender: FDA-Public Use
  Company Number: None

PATIENT
  Age: 32 Year
  Sex: Female
  Weight: 72.1219 kg

DRUGS (1)
  1. TERBINAFINE HCL [Suspect]
     Indication: NAIL TINEA
     Dosage: 250MG 1 TAB DAILY PO
     Route: 048
     Dates: start: 20070927, end: 20071112

REACTIONS (1)
  - AGEUSIA [None]
